FAERS Safety Report 8122243-6 (Version None)
Quarter: 2012Q1

REPORT INFORMATION
  Report Type: 
  Country: None (occurrence: None)
  Receive Date: 20120208
  Receipt Date: 20120201
  Transmission Date: 20120608
  Serious: Yes (Other)
  Sender: FDA-Public Use
  Company Number: FR-BRISTOL-MYERS SQUIBB COMPANY-16379927

PATIENT
  Age: 60 Year
  Sex: Female

DRUGS (2)
  1. PAROXETINE HCL [Concomitant]
  2. ABILIFY [Suspect]
     Indication: PSYCHOTIC DISORDER
     Dosage: DOSAGE IN EVENING
     Dates: start: 20110901

REACTIONS (3)
  - MUSCLE DISORDER [None]
  - LUNG INFECTION [None]
  - URINARY TRACT INFECTION [None]
